FAERS Safety Report 17881888 (Version 2)
Quarter: 2020Q2

REPORT INFORMATION
  Report Type: Spontaneous
  Country: US (occurrence: US)
  Receive Date: 20200610
  Receipt Date: 20200626
  Transmission Date: 20200714
  Serious: No
  Sender: FDA-Public Use
  Company Number: US-JNJFOC-20200608704

PATIENT
  Age: 24 Year
  Sex: Female
  Weight: 63.11 kg

DRUGS (1)
  1. SPRAVATO [Suspect]
     Active Substance: ESKETAMINE
     Indication: PRODUCT USED FOR UNKNOWN INDICATION
     Dates: start: 20191121

REACTIONS (6)
  - Nasal discomfort [Recovered/Resolved]
  - Dysgeusia [Recovered/Resolved]
  - Panic disorder [Unknown]
  - Depression [Unknown]
  - Insomnia [Unknown]
  - Anxiety [Unknown]

NARRATIVE: CASE EVENT DATE: 20200604
